FAERS Safety Report 6378371-9 (Version None)
Quarter: 2009Q3

REPORT INFORMATION
  Report Type: 
  Country: None (occurrence: None)
  Receive Date: 20090925
  Receipt Date: 20090707
  Transmission Date: 20100115
  Serious: No
  Sender: FDA-Public Use
  Company Number: US-ASTRAZENECA-2009UW11998

PATIENT
  Age: 30 Year
  Sex: Female
  Weight: 158.3 kg

DRUGS (5)
  1. SEROQUEL [Suspect]
     Indication: DEPRESSION
     Dosage: 50 TO 400 MG
     Route: 048
     Dates: start: 20030101
  2. SEROQUEL [Suspect]
     Indication: INSOMNIA
     Dosage: 50 TO 400 MG
     Route: 048
     Dates: start: 20030101
  3. LEXAPRO [Concomitant]
     Dates: start: 20030101
  4. CELEXA [Concomitant]
     Dates: start: 20090101
  5. WELLBUTRIN [Concomitant]
     Dates: start: 20090101

REACTIONS (2)
  - OBESITY [None]
  - TYPE 1 DIABETES MELLITUS [None]
